FAERS Safety Report 10099988 (Version 2)
Quarter: 2014Q2

REPORT INFORMATION
  Report Type: Spontaneous
  Country: GB (occurrence: GB)
  Receive Date: 20140423
  Receipt Date: 20140605
  Transmission Date: 20141212
  Serious: Yes (Hospitalization, Other)
  Sender: FDA-Public Use
  Company Number: GB-ASTELLAS-2014EU004019

PATIENT
  Age: 58 Year
  Sex: Female
  Weight: 56.5 kg

DRUGS (2)
  1. VESICARE [Suspect]
     Indication: BLADDER IRRITATION
     Route: 048
     Dates: start: 20140205, end: 20140428
  2. LIVIAL [Concomitant]
     Indication: HORMONE REPLACEMENT THERAPY
     Route: 048
     Dates: start: 20131227

REACTIONS (9)
  - Dyspnoea [Unknown]
  - Chest pain [Recovered/Resolved]
  - Suicidal ideation [Unknown]
  - Fatigue [Unknown]
  - Influenza like illness [Unknown]
  - Libido increased [Unknown]
  - Somnolence [Recovered/Resolved]
  - Apathy [Recovered/Resolved]
  - Sleep disorder [Recovered/Resolved]
